FAERS Safety Report 6055916-X (Version None)
Quarter: 2009Q1

REPORT INFORMATION
  Report Type: 
  Country: None (occurrence: None)
  Receive Date: 20090128
  Receipt Date: 20090122
  Transmission Date: 20090719
  Serious: Yes (Hospitalization)
  Sender: FDA-Public Use
  Company Number: PHHY2009JP00838

PATIENT
  Age: 80 Year
  Sex: Female

DRUGS (1)
  1. VOLTAREN [Suspect]
     Dosage: 75 MG, TID
     Route: 048

REACTIONS (10)
  - ABDOMINAL TENDERNESS [None]
  - DUODENAL STENOSIS [None]
  - ENDOSCOPY ABNORMAL [None]
  - EROSIVE DUODENITIS [None]
  - GASTRIC DILATATION [None]
  - GASTRIC MUCOSAL LESION [None]
  - GASTRITIS EROSIVE [None]
  - GASTROINTESTINAL SOUNDS ABNORMAL [None]
  - NAUSEA [None]
  - ULCER [None]
